FAERS Safety Report 4482699-7 (Version None)
Quarter: 2004Q4

REPORT INFORMATION
  Report Type: 
  Country: None (occurrence: None)
  Receive Date: 20041022
  Receipt Date: 20040914
  Transmission Date: 20050328
  Serious: Yes (Hospitalization)
  Sender: FDA-Public Use
  Company Number: PHBS2004JP12192

PATIENT
  Age: 69 Year
  Sex: Female

DRUGS (3)
  1. LAMISIL [Suspect]
     Indication: NAIL TINEA
     Dosage: 125 MG/D
     Route: 048
     Dates: start: 20040804, end: 20040901
  2. OLMETEC [Suspect]
     Indication: HYPERTENSION
     Dosage: 20 MG/D
     Route: 048
     Dates: start: 20040628, end: 20040914
  3. KAMISHOUYOUSAN [Suspect]
     Dosage: 7.5 G/DAY
     Route: 048
     Dates: start: 20040520, end: 20040914

REACTIONS (6)
  - ALANINE AMINOTRANSFERASE INCREASED [None]
  - ASPARTATE AMINOTRANSFERASE INCREASED [None]
  - CONCOMITANT DISEASE AGGRAVATED [None]
  - GAMMA-GLUTAMYLTRANSFERASE INCREASED [None]
  - HEPATIC FUNCTION ABNORMAL [None]
  - HEPATITIS C [None]
